FAERS Safety Report 6421559-9 (Version None)
Quarter: 2009Q4

REPORT INFORMATION
  Report Type: 
  Country: None (occurrence: None)
  Receive Date: 20091030
  Receipt Date: 20091021
  Transmission Date: 20100525
  Serious: Yes (Hospitalization)
  Sender: FDA-Public Use
  Company Number: JP-NOVOPROD-292142

PATIENT

DRUGS (4)
  1. NORDITROPIN NORDIFLEX [Suspect]
     Indication: BODY HEIGHT BELOW NORMAL
     Dosage: .18 MG/KG, UNK
     Route: 058
     Dates: start: 20081006, end: 20090427
  2. NORDITROPIN NORDIFLEX [Suspect]
     Indication: GROWTH HORMONE DEFICIENCY
     Dosage: .187 MG/KG, UNK
     Dates: start: 20081209, end: 20090316
  3. NORDITROPIN NORDIFLEX [Suspect]
     Dosage: .19 UNK, UNK
     Dates: start: 20090316, end: 20090427
  4. LACTOMIN [Concomitant]
     Indication: DIARRHOEA
     Dosage: 3 G, UNK
     Route: 048
     Dates: start: 20090420, end: 20090427

REACTIONS (3)
  - ANTI-GAD ANTIBODY POSITIVE [None]
  - HYPERGLYCAEMIA [None]
  - URINARY TRACT INFECTION [None]
